FAERS Safety Report 6753843-3 (Version None)
Quarter: 2010Q2

REPORT INFORMATION
  Report Type: 
  Country: None (occurrence: None)
  Receive Date: 20100601
  Receipt Date: 20100521
  Transmission Date: 20101027
  Serious: Yes (Hospitalization)
  Sender: FDA-Public Use
  Company Number: 2010SP028662

PATIENT
  Age: 44 Year
  Sex: Male

DRUGS (2)
  1. REBETOL [Suspect]
     Indication: HEPATITIS C
     Dosage: 1200 MG; QD; PO
     Route: 048
     Dates: start: 20100226, end: 20100415
  2. PEGASYS [Suspect]
     Indication: HEPATITIS C
     Dosage: 180 MCG; QW; SC
     Route: 058
     Dates: start: 20100226, end: 20100409

REACTIONS (6)
  - BLEPHARITIS [None]
  - BLOOD POTASSIUM DECREASED [None]
  - ERYTHEMA [None]
  - EYE INFLAMMATION [None]
  - SKIN EXFOLIATION [None]
  - SKIN REACTION [None]
